FAERS Safety Report 18156545 (Version 1)
Quarter: 2020Q3

REPORT INFORMATION
  Report Type: Spontaneous
  Country: US (occurrence: US)
  Receive Date: 20200817
  Receipt Date: 20200817
  Transmission Date: 20201103
  Serious: No
  Sender: FDA-Public Use
  Company Number: US-PFIZER INC-2020315551

PATIENT
  Age: 56 Year
  Sex: Female
  Weight: 102.06 kg

DRUGS (1)
  1. VENLAFAXINE HCL [Suspect]
     Active Substance: VENLAFAXINE HYDROCHLORIDE
     Indication: ANTIDEPRESSANT THERAPY
     Dosage: 75 MG, 1X/DAY
     Dates: start: 2005, end: 20200730

REACTIONS (2)
  - Anxiety [Unknown]
  - Asthma [Unknown]

NARRATIVE: CASE EVENT DATE: 2010
